FAERS Safety Report 21413646 (Version 2)
Quarter: 2022Q4

REPORT INFORMATION
  Report Type: Report from Study
  Country: US (occurrence: US)
  Receive Date: 20221006
  Receipt Date: 20221029
  Transmission Date: 20230112
  Serious: No
  Sender: FDA-Public Use
  Company Number: US-ABBVIE-4133424

PATIENT
  Age: 79 Year
  Sex: Female
  Weight: 58.5 kg

DRUGS (4)
  1. VENCLEXTA [Suspect]
     Active Substance: VENETOCLAX
     Indication: Myelodysplastic syndrome
     Dosage: DAY 4, AVOID GRAPEFRUIT PRODUCTS, SEVILLE ORANGES, AND STAR FRUIT. SWALLOW WHOLE WITH FOOD. DO NO...
     Route: 048
  2. VENCLEXTA [Suspect]
     Active Substance: VENETOCLAX
     Indication: Myelodysplastic syndrome
     Dosage: DAY ONE/AVOID GRAPEFRUIT PRODUCTS, SEVILLE ORANGES, AND STAR FRUIT. SWALLOW WHOLE WITH FOOD. DO N...
     Route: 048
     Dates: start: 202209
  3. VENCLEXTA [Suspect]
     Active Substance: VENETOCLAX
     Indication: Myelodysplastic syndrome
     Dosage: DAY 3, 5 TABLETS. AVOID GRAPEFRUIT PRODUCTS, SEVILLE ORANGES, AND STAR FRUIT. SWALLOW WHOLE WITH ...
     Route: 048
  4. VENCLEXTA [Suspect]
     Active Substance: VENETOCLAX
     Indication: Myelodysplastic syndrome
     Dosage: DAY 2. AVOID GRAPEFRUIT PRODUCTS, SEVILLE ORANGES, AND STAR FRUIT. SWALLOW WHOLE WITH FOOD. DO NO...
     Route: 048

REACTIONS (2)
  - Swollen tongue [Unknown]
  - Off label use [Unknown]

NARRATIVE: CASE EVENT DATE: 20220901
